FAERS Safety Report 18414577 (Version 3)
Quarter: 2021Q4

REPORT INFORMATION
  Report Type: Report from Study
  Country: US (occurrence: US)
  Receive Date: 20201022
  Receipt Date: 20211009
  Transmission Date: 20220304
  Serious: Yes (Other)
  Sender: FDA-Public Use
  Company Number: NVSC2020US276721

PATIENT
  Age: 60 Year
  Sex: Female

DRUGS (4)
  1. ENTRESTO [Suspect]
     Active Substance: SACUBITRIL\VALSARTAN
     Indication: Cardiac failure
     Dosage: 1 DF, BID
     Route: 065
     Dates: start: 20200911
  2. ENTRESTO [Suspect]
     Active Substance: SACUBITRIL\VALSARTAN
     Dosage: 50 MG, BID
     Route: 048
     Dates: start: 20200915
  3. XARELTO [Suspect]
     Active Substance: RIVAROXABAN
     Indication: Non-compaction cardiomyopathy
     Dosage: UNK
     Route: 065
     Dates: start: 202104
  4. XARELTO [Suspect]
     Active Substance: RIVAROXABAN
     Indication: Arterial stent insertion

REACTIONS (3)
  - Atrial fibrillation [Unknown]
  - Arrhythmia [Recovering/Resolving]
  - Cough [Unknown]

NARRATIVE: CASE EVENT DATE: 20201015
